FAERS Safety Report 9598363 (Version 1)
Quarter: 2013Q4

REPORT INFORMATION
  Report Type: Spontaneous
  Country: US (occurrence: US)
  Receive Date: 20131004
  Receipt Date: 20131004
  Transmission Date: 20140711
  Serious: No
  Sender: FDA-Public Use
  Company Number: US-AMGEN-USASP2013023374

PATIENT
  Age: 30 Year
  Sex: Female

DRUGS (28)
  1. ENBREL [Suspect]
     Indication: PRODUCT USED FOR UNKNOWN INDICATION
     Dosage: 50 MG, QWK
     Route: 058
  2. KLONOPIN [Concomitant]
     Dosage: 0.5 MG, UNK
  3. CENTRUM                            /02217401/ [Concomitant]
  4. SINGULAIR [Concomitant]
     Dosage: 10 MG, UNK
  5. PHENERGAN                          /00033001/ [Concomitant]
     Dosage: 25 MG, UNK
  6. XANAX [Concomitant]
     Dosage: 0.5 MG, UNK
  7. PLAQUENIL                          /00072602/ [Concomitant]
     Dosage: 200 MG, UNK
  8. AMBIEN [Concomitant]
     Dosage: 5 MG, UNK
  9. CELEBREX [Concomitant]
     Dosage: 100 MG, UNK
  10. TOPAMAX [Concomitant]
     Dosage: 25 MG, UNK
  11. ZOLOFT [Concomitant]
     Dosage: 25 MG, UNK
  12. METHOTREXATE [Concomitant]
     Dosage: 2.5 MG, UNK
  13. PREDNISONE [Concomitant]
     Dosage: 1 MG, UNK
  14. CLARINEX                           /01202601/ [Concomitant]
     Dosage: 5 MG, UNK
  15. ZOFRAN                             /00955301/ [Concomitant]
     Dosage: 4 MG, UNK
  16. NEXIUM                             /01479302/ [Concomitant]
     Dosage: 20 MG, UNK
  17. SEROQUEL [Concomitant]
     Dosage: 50 MG, UNK
  18. MORPHINE SULFATE [Concomitant]
     Dosage: 15 MG, UNK
  19. VITAMIN D2 [Concomitant]
     Dosage: 2000 UNIT, UNK
  20. VERAPAMIL [Concomitant]
     Dosage: 100 MG, UNK
  21. LORTAB                             /00607101/ [Concomitant]
     Dosage: UNK, 5 TAB
  22. FOLIC ACID [Concomitant]
     Dosage: UNK
  23. CALCIUM [Concomitant]
     Dosage: UNK, 500 TAB
  24. BIOTIN [Concomitant]
     Dosage: 10 MG, UNK
  25. VITAMIN B12                        /00056201/ [Concomitant]
     Dosage: 1000 MUG, UNK
  26. ABILIFY [Concomitant]
     Dosage: 10 MG, UNK
  27. FLEXERIL                           /00428402/ [Concomitant]
     Dosage: 5 MG, UNK
  28. PERCOCET                           /00446701/ [Concomitant]
     Dosage: 5-325 MG

REACTIONS (1)
  - Sinusitis [Recovered/Resolved]
